FAERS Safety Report 4563321-8 (Version None)
Quarter: 2005Q1

REPORT INFORMATION
  Report Type: 
  Country: None (occurrence: None)
  Receive Date: 20050128
  Receipt Date: 20040109
  Transmission Date: 20050727
  Serious: Yes (Other)
  Sender: FDA-Public Use
  Company Number: US-GLAXOSMITHKLINE-A0492259A

PATIENT
  Age: 6 Year

DRUGS (3)
  1. BUPROPION HCL [Suspect]
     Indication: ILL-DEFINED DISORDER
     Dosage: 150MG TWICE PER DAY
     Route: 048
  2. ADDERALL 5 [Concomitant]
  3. ZYPREXA [Concomitant]

REACTIONS (1)
  - GRAND MAL CONVULSION [None]
